FAERS Safety Report 25496054 (Version 1)
Quarter: 2025Q2

REPORT INFORMATION
  Report Type: Spontaneous
  Country: US (occurrence: US)
  Receive Date: 20250630
  Receipt Date: 20250630
  Transmission Date: 20250716
  Serious: Yes (Hospitalization)
  Sender: AMGEN
  Company Number: US-AMGEN-USASP2025124009

PATIENT
  Age: 68 Year
  Sex: Male

DRUGS (8)
  1. PREDNISONE [Suspect]
     Active Substance: PREDNISONE
     Indication: Product used for unknown indication
     Route: 065
  2. VALGANCICLOVIR [Concomitant]
     Active Substance: VALGANCICLOVIR
  3. TACROLIMUS [Concomitant]
     Active Substance: TACROLIMUS
  4. INSULIN NOS [Concomitant]
     Active Substance: INSULIN NOS
  5. ATORVASTATIN [Concomitant]
     Active Substance: ATORVASTATIN
  6. SULFAMETHOXAZOLE\TRIMETHOPRIM [Concomitant]
     Active Substance: SULFAMETHOXAZOLE\TRIMETHOPRIM
  7. TAMSULOSIN [Concomitant]
     Active Substance: TAMSULOSIN
  8. METOPROLOL SUCCINATE [Concomitant]
     Active Substance: METOPROLOL SUCCINATE

REACTIONS (3)
  - Candida infection [Recovered/Resolved]
  - Cytomegalovirus viraemia [Recovered/Resolved]
  - Endocarditis [Unknown]
